FAERS Safety Report 9651863 (Version 2)
Quarter: 2013Q4

REPORT INFORMATION
  Report Type: Spontaneous
  Country: GB (occurrence: GB)
  Receive Date: 20131029
  Receipt Date: 20131205
  Transmission Date: 20140711
  Serious: Yes (Death, Other)
  Sender: FDA-Public Use
  Company Number: GB-JNJFOC-20131014037

PATIENT
  Age: 65 Year
  Sex: Female

DRUGS (5)
  1. REMICADE [Suspect]
     Indication: CROHN^S DISEASE
     Dosage: 5 MG/KG, 4 DOSES AT 0, 2, 6 WEEKS THEN 8 WEEKS LATER
     Route: 042
     Dates: start: 20130520, end: 20130909
  2. ADALIMUMAB [Suspect]
     Indication: CROHN^S DISEASE
     Dosage: LOADING DOSE
     Route: 065
     Dates: start: 20130306, end: 20130506
  3. ADALIMUMAB [Suspect]
     Indication: CROHN^S DISEASE
     Dosage: LOADING DOSE
     Route: 065
     Dates: start: 20121123, end: 201303
  4. AZATHIOPRINE [Suspect]
     Indication: CROHN^S DISEASE
     Route: 048
     Dates: start: 201007, end: 20131017
  5. FERROUS SULPHATE [Concomitant]
     Indication: ANAEMIA
     Route: 048

REACTIONS (1)
  - Acute myeloid leukaemia [Fatal]
